FAERS Safety Report 9162435 (Version 1)
Quarter: 2013Q1

REPORT INFORMATION
  Report Type: Spontaneous
  Country: US (occurrence: None)
  Receive Date: 20130227
  Receipt Date: 20130227
  Transmission Date: 20140127
  Serious: Yes (Hospitalization)
  Sender: FDA-Public Use
  Company Number: DSU-2013-01510

PATIENT
  Age: 70 Year
  Sex: Female
  Weight: 90.72 kg

DRUGS (1)
  1. TRIBENZOR (OLMESARTAN MEDOXOMIL, AMLODIPINE, HYDROCHLOROTHIAZINE) (TABLET) [Suspect]
     Indication: HYPERTENSION
     Route: 048
     Dates: start: 201211, end: 201301

REACTIONS (10)
  - Cardiac pacemaker insertion [None]
  - Vomiting [None]
  - Nausea [None]
  - Generalised oedema [None]
  - Local swelling [None]
  - Local swelling [None]
  - Abasia [None]
  - Blood pressure increased [None]
  - Dyspnoea [None]
  - Angina pectoris [None]
